FAERS Safety Report 7279706-5 (Version None)
Quarter: 2011Q1

REPORT INFORMATION
  Report Type: 
  Country: None (occurrence: None)
  Receive Date: 20110203
  Receipt Date: 20110203
  Transmission Date: 20110831
  Serious: No
  Sender: FDA-Public Use
  Company Number: None

PATIENT
  Sex: Female

DRUGS (1)
  1. PROPOFOL [Suspect]
     Indication: GENERAL ANAESTHESIA
     Dates: start: 20100810, end: 20110202

REACTIONS (1)
  - EXTRAVASATION [None]
